FAERS Safety Report 8219434-2 (Version None)
Quarter: 2012Q1

REPORT INFORMATION
  Report Type: 
  Country: None (occurrence: None)
  Receive Date: 20120319
  Receipt Date: 20120314
  Transmission Date: 20120608
  Serious: Yes (Hospitalization, Congenital Anomaly, Other)
  Sender: FDA-Public Use
  Company Number: US-PFIZER INC-2011270341

PATIENT
  Sex: Male
  Weight: 3.4 kg

DRUGS (7)
  1. ZOLOFT [Suspect]
     Dosage: 75 MG, DAILY
     Route: 064
     Dates: end: 20081117
  2. OVCON-35 [Concomitant]
     Dosage: 0.4 UG, 1X/DAY ONE TABLET
     Route: 064
     Dates: start: 20080418
  3. IRON [Concomitant]
     Dosage: ONE TABLET DAILY
     Route: 064
     Dates: start: 20080822
  4. MULTI-VITAMINS [Concomitant]
     Dosage: UNK
     Route: 064
  5. HALCION [Concomitant]
     Dosage: 25 MG, UNK
     Route: 064
     Dates: start: 20080328
  6. ZOLOFT [Suspect]
     Indication: DEPRESSION
     Dosage: 50 MG, DAILY
     Route: 064
  7. FLEXERIL [Concomitant]
     Dosage: 10 MG, 3X/DAY ONE TABLET
     Route: 064
     Dates: start: 20080820

REACTIONS (14)
  - CARDIOMEGALY [None]
  - BICUSPID AORTIC VALVE [None]
  - DILATATION VENTRICULAR [None]
  - CEREBRAL CYST [None]
  - MATERNAL EXPOSURE TIMING UNSPECIFIED [None]
  - ATRIAL SEPTAL DEFECT [None]
  - PYELOCALIECTASIS [None]
  - AORTIC DILATATION [None]
  - VENTRICULAR HYPERTROPHY [None]
  - PATENT DUCTUS ARTERIOSUS [None]
  - AORTA HYPOPLASIA [None]
  - COARCTATION OF THE AORTA [None]
  - AORTIC VALVE STENOSIS [None]
  - TRICUSPID VALVE INCOMPETENCE [None]
